FAERS Safety Report 19766442 (Version 1)
Quarter: 2021Q3

REPORT INFORMATION
  Report Type: Other
  Country: CA (occurrence: CA)
  Receive Date: 20210831
  Receipt Date: 20210831
  Transmission Date: 20211014
  Serious: Yes (Hospitalization, Other)
  Sender: FDA-Public Use
  Company Number: CA-APOTEX-2021AP039490

PATIENT
  Age: 47 Year
  Sex: Female

DRUGS (2)
  1. WARFARIN [Interacting]
     Active Substance: WARFARIN
     Indication: PRODUCT USED FOR UNKNOWN INDICATION
     Dosage: UNK
     Route: 048
  2. ACETAMINOPHEN. [Suspect]
     Active Substance: ACETAMINOPHEN
     Indication: PRODUCT USED FOR UNKNOWN INDICATION
     Dosage: 4 GRAM, QD
     Route: 048

REACTIONS (8)
  - Drug interaction [Unknown]
  - Feeling hot [Unknown]
  - Haematoma [Unknown]
  - Ecchymosis [Unknown]
  - Pain [Unknown]
  - Contusion [Unknown]
  - Haemorrhage [Unknown]
  - Swelling [Unknown]
